FAERS Safety Report 8232400-6 (Version None)
Quarter: 2012Q1

REPORT INFORMATION
  Report Type: 
  Country: None (occurrence: None)
  Receive Date: 20120323
  Receipt Date: 20120313
  Transmission Date: 20120608
  Serious: Yes (Life-Threatening, Hospitalization, Disabling)
  Sender: FDA-Public Use
  Company Number: DE-GLAXOSMITHKLINE-D0074392A

PATIENT
  Sex: Male
  Weight: 39 kg

DRUGS (9)
  1. CYCLOPHOSPHAMIDE [Concomitant]
     Dosage: 550MG PER DAY
     Route: 042
     Dates: start: 20120106, end: 20120110
  2. MULTIPLE MEDICATIONS [Concomitant]
     Route: 065
  3. PREDNISOLONE [Concomitant]
     Indication: LEUKAEMIC INFILTRATION BRAIN
     Dosage: 10MG PER DAY
     Route: 065
     Dates: start: 20120105
  4. ATRIANCE [Suspect]
     Indication: ACUTE LYMPHOCYTIC LEUKAEMIA
     Dosage: 810MG PER DAY
     Route: 042
     Dates: start: 20120106, end: 20120110
  5. METHOTREXATE [Concomitant]
     Indication: LEUKAEMIC INFILTRATION BRAIN
     Dosage: 12MG PER DAY
     Route: 065
     Dates: start: 20120105
  6. ATRIANCE [Suspect]
     Dosage: 820MG PER DAY
     Route: 042
     Dates: start: 20111224, end: 20111224
  7. ETOPOPHOS PRESERVATIVE FREE [Concomitant]
     Dosage: 125MG PER DAY
     Route: 042
     Dates: start: 20120106, end: 20120110
  8. MESNA [Concomitant]
     Dosage: 190MG THREE TIMES PER DAY
     Route: 042
     Dates: start: 20120106, end: 20120110
  9. CYTARABINE [Concomitant]
     Indication: LEUKAEMIC INFILTRATION BRAIN
     Dosage: 30MG PER DAY
     Route: 065
     Dates: start: 20120105

REACTIONS (28)
  - ELECTROENCEPHALOGRAM ABNORMAL [None]
  - NEUROGENIC BLADDER [None]
  - GUILLAIN-BARRE SYNDROME [None]
  - CONVULSION [None]
  - DEPRESSED LEVEL OF CONSCIOUSNESS [None]
  - NEUROPATHY PERIPHERAL [None]
  - NEURALGIA [None]
  - SENSORY LOSS [None]
  - BLADDER CATHETERISATION [None]
  - PARESIS [None]
  - PARALYSIS FLACCID [None]
  - COMA [None]
  - MECHANICAL VENTILATION [None]
  - ENDOTRACHEAL INTUBATION [None]
  - OPHTHALMOPLEGIA [None]
  - HYPOREFLEXIA [None]
  - AREFLEXIA [None]
  - CARDIAC ARREST [None]
  - TUMOUR LYSIS SYNDROME [None]
  - HALLUCINATION [None]
  - BLINDNESS [None]
  - NERVOUS SYSTEM DISORDER [None]
  - DRUG INTERACTION [None]
  - MYOCLONUS [None]
  - MUSCULAR WEAKNESS [None]
  - RESPIRATORY DISTRESS [None]
  - RESUSCITATION [None]
  - TRACHEOSTOMY [None]
